FAERS Safety Report 12111197 (Version 1)
Quarter: 2016Q1

REPORT INFORMATION
  Report Type: Spontaneous
  Country: US (occurrence: US)
  Receive Date: 20160224
  Receipt Date: 20160224
  Transmission Date: 20160526
  Serious: No
  Sender: FDA-Public Use
  Company Number: US-JAZZ-2015-US-009686

PATIENT
  Age: 64 Year
  Sex: Female

DRUGS (15)
  1. PRIALT [Suspect]
     Active Substance: ZICONOTIDE ACETATE
     Indication: INTERVERTEBRAL DISC DEGENERATION
     Dosage: 0.0375 ?G, QH
     Route: 037
  2. CLONIDINE. [Suspect]
     Active Substance: CLONIDINE
     Indication: INTERVERTEBRAL DISC PROTRUSION
  3. DILAUDID [Suspect]
     Active Substance: HYDROMORPHONE HYDROCHLORIDE
     Indication: INTERVERTEBRAL DISC PROTRUSION
  4. SUFENTANIL CITRATE. [Suspect]
     Active Substance: SUFENTANIL CITRATE
     Indication: INTERVERTEBRAL DISC PROTRUSION
  5. BACLOFEN. [Suspect]
     Active Substance: BACLOFEN
     Indication: INTERVERTEBRAL DISC DEGENERATION
     Dosage: 3.75 ?G, QH
     Route: 037
  6. DILAUDID [Suspect]
     Active Substance: HYDROMORPHONE HYDROCHLORIDE
     Indication: INTERVERTEBRAL DISC DEGENERATION
     Dosage: 0.375 MG, QH
     Route: 037
  7. SUFENTANIL CITRATE. [Suspect]
     Active Substance: SUFENTANIL CITRATE
     Indication: PAIN
  8. CLONIDINE. [Suspect]
     Active Substance: CLONIDINE
     Indication: INTERVERTEBRAL DISC DEGENERATION
     Dosage: 3.75 ?G, QH
     Route: 037
  9. CLONIDINE. [Suspect]
     Active Substance: CLONIDINE
     Indication: PAIN
  10. BACLOFEN. [Suspect]
     Active Substance: BACLOFEN
     Indication: PAIN
  11. PRIALT [Suspect]
     Active Substance: ZICONOTIDE ACETATE
     Indication: INTERVERTEBRAL DISC PROTRUSION
  12. BACLOFEN. [Suspect]
     Active Substance: BACLOFEN
     Indication: INTERVERTEBRAL DISC PROTRUSION
  13. SUFENTANIL CITRATE. [Suspect]
     Active Substance: SUFENTANIL CITRATE
     Indication: INTERVERTEBRAL DISC DEGENERATION
     Dosage: 0.937 ?G, UNK
     Route: 037
  14. PRIALT [Suspect]
     Active Substance: ZICONOTIDE ACETATE
     Indication: PAIN
  15. DILAUDID [Suspect]
     Active Substance: HYDROMORPHONE HYDROCHLORIDE
     Indication: PAIN

REACTIONS (2)
  - Drug withdrawal syndrome [Not Recovered/Not Resolved]
  - Device issue [Not Recovered/Not Resolved]

NARRATIVE: CASE EVENT DATE: 20150614
